FAERS Safety Report 4496300-X (Version None)
Quarter: 2004Q4

REPORT INFORMATION
  Report Type: 
  Country: None (occurrence: None)
  Receive Date: 20041109
  Receipt Date: 20041020
  Transmission Date: 20050328
  Serious: Yes (Hospitalization)
  Sender: FDA-Public Use
  Company Number: 200420486GDDC

PATIENT
  Age: 54 Year
  Sex: Female
  Weight: 66 kg

DRUGS (3)
  1. TAXOTERE [Suspect]
     Indication: NON-SMALL CELL LUNG CANCER
     Route: 042
     Dates: start: 20041006, end: 20041006
  2. DEXAMETHASONE [Suspect]
     Indication: NON-SMALL CELL LUNG CANCER
     Route: 048
  3. RADIOTHERAPY [Suspect]
     Indication: NON-SMALL CELL LUNG CANCER
     Dosage: DOSE: EXTERNAL BEAM, 3D 6100 CGY
     Dates: start: 20040819

REACTIONS (4)
  - COUGH [None]
  - DYSPNOEA EXERTIONAL [None]
  - PNEUMONIA NECROTISING [None]
  - PNEUMONITIS [None]
